FAERS Safety Report 6145019-8 (Version None)
Quarter: 2009Q2

REPORT INFORMATION
  Report Type: 
  Country: None (occurrence: None)
  Receive Date: 20090401
  Receipt Date: 20090401
  Transmission Date: 20091009
  Serious: Yes (Death)
  Sender: FDA-Public Use
  Company Number: None

PATIENT
  Sex: Male
  Weight: 2.2 kg

DRUGS (2)
  1. KETAMINE HCL [Suspect]
     Indication: ENDOTRACHEAL INTUBATION
     Dosage: 4.5 MG/KG ONCE IV BOLUS
     Route: 040
     Dates: start: 20081106, end: 20081106
  2. FENTANYL [Suspect]
     Indication: ENDOTRACHEAL INTUBATION
     Dosage: 10 MCG/KG/HR CONTINUOUS IV DRIP
     Route: 041
     Dates: start: 20081106, end: 20081106

REACTIONS (3)
  - BRADYCARDIA NEONATAL [None]
  - INFUSION RELATED REACTION [None]
  - NEONATAL HYPOTENSION [None]
